FAERS Safety Report 9339244 (Version 1)
Quarter: 2013Q2

REPORT INFORMATION
  Report Type: Spontaneous
  Country: US (occurrence: None)
  Receive Date: 20130606
  Receipt Date: 20130606
  Transmission Date: 20140414
  Serious: Yes (Other)
  Sender: FDA-Public Use
  Company Number: None

PATIENT
  Age: 57 Year
  Sex: Male
  Weight: 120.2 kg

DRUGS (9)
  1. INVANZ [Suspect]
     Route: 041
     Dates: start: 20130517, end: 20130522
  2. VANCOMYCIN [Suspect]
     Dosage: 1750 EVERY 12 HOURS IV DRIP
     Route: 041
     Dates: start: 20130517, end: 20130601
  3. ALPRAZOLAM [Concomitant]
  4. AMITRIPTYLINE [Concomitant]
  5. AVODART [Concomitant]
  6. CETIRIZINE [Concomitant]
  7. CRESTOR [Concomitant]
  8. CYCLOBENZAPRINE [Concomitant]
  9. GABAPENTIN [Concomitant]

REACTIONS (1)
  - Miliaria [None]
